FAERS Safety Report 16583383 (Version 2)
Quarter: 2020Q3

REPORT INFORMATION
  Report Type: Spontaneous
  Country: US (occurrence: US)
  Receive Date: 20190717
  Receipt Date: 20200704
  Transmission Date: 20201102
  Serious: Yes (Other)
  Sender: FDA-Public Use
  Company Number: US-SUN PHARMACEUTICAL INDUSTRIES LTD-2019R1-214071

PATIENT
  Age: 50 Year
  Sex: Male

DRUGS (1)
  1. LIPOSOMAL DOXORUBICIN [Suspect]
     Active Substance: DOXORUBICIN HYDROCHLORIDE
     Indication: ANGIOSARCOMA
     Dosage: 45 MILLIGRAM/SQ. METER (EVERY 4 WEEKS)
     Route: 065

REACTIONS (1)
  - Squamous cell carcinoma of skin [Unknown]
